FAERS Safety Report 5759008-6 (Version None)
Quarter: 2008Q2

REPORT INFORMATION
  Report Type: 
  Country: None (occurrence: None)
  Receive Date: 20080604
  Receipt Date: 20080528
  Transmission Date: 20081010
  Serious: Yes (Other)
  Sender: FDA-Public Use
  Company Number: GB-PFIZER INC-2008045962

PATIENT
  Age: 65 Year
  Sex: Male

DRUGS (6)
  1. SILDENAFIL CITRATE [Suspect]
     Dates: start: 20071126, end: 20080502
  2. ASPIRIN [Concomitant]
  3. ATORVASTATIN [Concomitant]
  4. CANDESARTAN [Concomitant]
  5. OMEPRAZOLE [Concomitant]
  6. PERINDOPRIL [Concomitant]

REACTIONS (3)
  - ANGIOEDEMA [None]
  - MALAISE [None]
  - SWELLING FACE [None]
